FAERS Safety Report 5203373-5 (Version None)
Quarter: 2007Q1

REPORT INFORMATION
  Report Type: 
  Country: None (occurrence: None)
  Receive Date: 20070110
  Receipt Date: 20070102
  Transmission Date: 20070707
  Serious: Yes (Hospitalization, Other)
  Sender: FDA-Public Use
  Company Number: PHEH2006US06496

PATIENT
  Age: 76 Year
  Sex: Male
  Weight: 95.238 kg

DRUGS (14)
  1. COUMADIN [Concomitant]
     Dates: start: 19990101
  2. SIMVASTATIN [Concomitant]
     Indication: BLOOD CHOLESTEROL INCREASED
     Dosage: 20 MG, QD
     Dates: start: 19960101
  3. SOTALOL HYDROCHLORIDE [Concomitant]
     Dosage: 1 TAB BID
     Dates: start: 19990101
  4. DITROPAN [Concomitant]
     Indication: INCONTINENCE
     Dates: start: 19990101
  5. DIOVAN HCT [Suspect]
     Indication: HYPERTENSION
     Dosage: 160MG VAL/25MG HCT, QD
     Dates: start: 20010101
  6. WARFARIN SODIUM [Concomitant]
     Dosage: 5MG, 3 TIMES/WK;  4MG 4 TIMES/WK
  7. PLETAL [Concomitant]
     Dosage: 50 MG, BID
  8. TRIAMCINOLONE ACETONIDE [Concomitant]
     Dosage: UNK, UNK
  9. PERCOCET [Concomitant]
     Indication: PAIN
     Dosage: 5MG/325, 1 TAB PRN
  10. ZEASORB [Concomitant]
     Indication: RASH
     Dosage: UNK, UNK
  11. VITAMIN CAP [Concomitant]
     Dosage: UNK, UNK
  12. ASPIRIN [Concomitant]
     Dosage: 1, QAM
  13. TYLENOL [Concomitant]
     Dosage: 1 TAB, QPM
  14. OCUVITE PRESERVISION /USA/ [Concomitant]
     Indication: MACULAR DEGENERATION
     Dosage: 1 TAB, BID

REACTIONS (23)
  - ACTIVITIES OF DAILY LIVING IMPAIRED [None]
  - ATRIAL FIBRILLATION [None]
  - BACK DISORDER [None]
  - BLOOD PRESSURE DECREASED [None]
  - CARDIAC PACEMAKER INSERTION [None]
  - COGWHEEL RIGIDITY [None]
  - DEHYDRATION [None]
  - DEPRESSION [None]
  - DERMATITIS DIAPER [None]
  - DIZZINESS [None]
  - ENCEPHALOPATHY [None]
  - FATIGUE [None]
  - GASTROINTESTINAL TUBE INSERTION [None]
  - INCONTINENCE [None]
  - KIDNEY INFECTION [None]
  - MACULAR DEGENERATION [None]
  - PANCREATITIS [None]
  - PARKINSON'S DISEASE [None]
  - SOMNOLENCE [None]
  - SPINAL COLUMN STENOSIS [None]
  - STAPHYLOCOCCAL INFECTION [None]
  - VISUAL ACUITY REDUCED [None]
  - WHEELCHAIR USER [None]
